FAERS Safety Report 18899594 (Version 1)
Quarter: 2021Q1

REPORT INFORMATION
  Report Type: Spontaneous
  Country: US (occurrence: US)
  Receive Date: 20210216
  Receipt Date: 20210216
  Transmission Date: 20210420
  Serious: Yes (Other)
  Sender: FDA-Public Use
  Company Number: US-PBT-000552

PATIENT
  Age: 2 Year
  Weight: 12 kg

DRUGS (9)
  1. MYCOPHENOLATE MOFETIL. [Suspect]
     Active Substance: MYCOPHENOLATE MOFETIL
     Indication: PROPHYLAXIS AGAINST TRANSPLANT REJECTION
     Route: 065
  2. AMLODIPINE [Suspect]
     Active Substance: AMLODIPINE BESYLATE
     Indication: HYPERTENSION
     Route: 065
  3. LEFLUNOMIDE. [Suspect]
     Active Substance: LEFLUNOMIDE
     Indication: PROPHYLAXIS AGAINST TRANSPLANT REJECTION
     Route: 065
  4. NYSTATIN. [Suspect]
     Active Substance: NYSTATIN
     Indication: ANTI-INFECTIVE THERAPY
     Route: 065
  5. SULFAMETHOXAZOLE [Suspect]
     Active Substance: SULFAMETHOXAZOLE
     Indication: ANTI-INFECTIVE THERAPY
     Route: 065
  6. VALGANCICLOVIR HYDROCHLORIDE. [Suspect]
     Active Substance: VALGANCICLOVIR HYDROCHLORIDE
     Indication: ANTI-INFECTIVE THERAPY
     Route: 065
  7. TACROLIMUS. [Suspect]
     Active Substance: TACROLIMUS
     Indication: PROPHYLAXIS AGAINST TRANSPLANT REJECTION
     Route: 065
  8. ACETYLSALICYLIC ACID [Suspect]
     Active Substance: ASPIRIN
     Indication: THROMBOSIS
     Route: 065
  9. TRIMETHOPRIM. [Suspect]
     Active Substance: TRIMETHOPRIM
     Indication: ANTI-INFECTIVE THERAPY
     Route: 065

REACTIONS (14)
  - Contusion [Unknown]
  - Renal artery stenosis [Recovered/Resolved]
  - Kidney fibrosis [Unknown]
  - Posterior reversible encephalopathy syndrome [Unknown]
  - Urinary tract infection [Unknown]
  - Febrile neutropenia [Unknown]
  - Polyomavirus viraemia [Recovered/Resolved]
  - Respiratory disorder [Unknown]
  - Left ventricular hypertrophy [Unknown]
  - Tubulointerstitial nephritis [Unknown]
  - Viral upper respiratory tract infection [Unknown]
  - Hypertension [Recovered/Resolved]
  - Generalised tonic-clonic seizure [Recovered/Resolved]
  - Inflammation [Unknown]
